FAERS Safety Report 6580637-4 (Version None)
Quarter: 2010Q1

REPORT INFORMATION
  Report Type: 
  Country: None (occurrence: None)
  Receive Date: 20100203
  Receipt Date: 20100119
  Transmission Date: 20100710
  Serious: Yes (Hospitalization)
  Sender: FDA-Public Use
  Company Number: 2010AM001057

PATIENT
  Age: 56 Year
  Sex: Male
  Weight: 149.687 kg

DRUGS (9)
  1. SYMLIN [Suspect]
     Indication: TYPE 2 DIABETES MELLITUS
     Dosage: 60 MCG; SC
     Route: 058
     Dates: start: 20091204, end: 20091211
  2. JANUMET [Suspect]
     Indication: DRUG USE FOR UNKNOWN INDICATION
     Dosage: ; BID;
  3. BENAZEPRIL HYDROCHLORIDE [Suspect]
     Indication: DRUG USE FOR UNKNOWN INDICATION
     Dosage: 40 MG; QD;
  4. TEKTURNA [Suspect]
     Indication: DRUG USE FOR UNKNOWN INDICATION
     Dosage: 300 MG; QD;
  5. CONTRAST MEDIA [Suspect]
     Indication: IMAGING PROCEDURE
     Dosage: ; X1;
     Dates: start: 20091201, end: 20091201
  6. GLUCOPHAGE [Concomitant]
  7. SIMAVASTATIN [Concomitant]
  8. COENZYME-K [Concomitant]
  9. FISH OIL [Concomitant]

REACTIONS (7)
  - BLOOD CHOLESTEROL INCREASED [None]
  - BLOOD MAGNESIUM DECREASED [None]
  - CHEST PAIN [None]
  - NEPHROPATHY [None]
  - PANCREATITIS ACUTE [None]
  - RENAL FAILURE ACUTE [None]
  - TROPONIN INCREASED [None]
